FAERS Safety Report 9419135 (Version 3)
Quarter: 2013Q3

REPORT INFORMATION
  Report Type: Spontaneous
  Country: US (occurrence: US)
  Receive Date: 20130725
  Receipt Date: 20130918
  Transmission Date: 20140515
  Serious: Yes (Other)
  Sender: FDA-Public Use
  Company Number: US-ASTELLAS-2013US007770

PATIENT
  Sex: Male

DRUGS (1)
  1. LEXISCAN [Suspect]
     Indication: PRODUCT USED FOR UNKNOWN INDICATION
     Dosage: UNK
     Route: 042
     Dates: start: 2013, end: 2013

REACTIONS (5)
  - Electrocardiogram ST segment abnormal [Unknown]
  - Coronary artery occlusion [Unknown]
  - Chest pain [Unknown]
  - Dyspnoea [Unknown]
  - Blood pressure decreased [Unknown]
